FAERS Safety Report 25816641 (Version 1)
Quarter: 2025Q3

REPORT INFORMATION
  Report Type: Other
  Country: GB (occurrence: GB)
  Receive Date: 20250918
  Receipt Date: 20250918
  Transmission Date: 20251021
  Serious: Yes (Hospitalization)
  Sender: NUVO PHARMACEUTICALS
  Company Number: GB-Nuvo Pharmaceuticals Inc-2184753

PATIENT
  Age: 7 Decade
  Sex: Male

DRUGS (2)
  1. OXYCODONE HYDROCHLORIDE [Suspect]
     Active Substance: OXYCODONE HYDROCHLORIDE
     Indication: Pain
  2. NITROUS OXIDE\OXYGEN [Concomitant]
     Active Substance: NITROUS OXIDE\OXYGEN

REACTIONS (1)
  - Hyperaesthesia [Recovered/Resolved]
